FAERS Safety Report 18583757 (Version 2)
Quarter: 2020Q4

REPORT INFORMATION
  Report Type: Report from Study
  Country: ES (occurrence: ES)
  Receive Date: 20201207
  Receipt Date: 20201212
  Transmission Date: 20210114
  Serious: Yes (Death)
  Sender: FDA-Public Use
  Company Number: ES-ROCHE-2726392

PATIENT
  Age: 56 Year
  Sex: Male
  Weight: 50 kg

DRUGS (4)
  1. DEXAMETHASONE. [Concomitant]
     Active Substance: DEXAMETHASONE
     Indication: COVID-19
     Route: 042
     Dates: start: 20201021, end: 20201106
  2. TOCILIZUMAB. [Suspect]
     Active Substance: TOCILIZUMAB
     Indication: COVID-19
     Dosage: ON THE SAME DAY, HE RECEIVED LAST DOSE OF TOCILIZUMAB PRIOR TO SERIOUS ADVERSE EVENT.
     Route: 042
     Dates: start: 20201028
  3. ENOXAPARIN [Concomitant]
     Active Substance: ENOXAPARIN
     Indication: VENOUS THROMBOSIS
     Route: 058
     Dates: start: 20201021, end: 20201106
  4. LEVETIRACETAM. [Concomitant]
     Active Substance: LEVETIRACETAM
     Indication: EPILEPSY
     Route: 042
     Dates: start: 20201021, end: 20201106

REACTIONS (1)
  - Acute respiratory distress syndrome [Fatal]

NARRATIVE: CASE EVENT DATE: 20201106
